FAERS Safety Report 6494914-9 (Version None)
Quarter: 2009Q4

REPORT INFORMATION
  Report Type: 
  Country: None (occurrence: None)
  Receive Date: 20091214
  Receipt Date: 20090408
  Transmission Date: 20100525
  Serious: No
  Sender: FDA-Public Use
  Company Number: US-BRISTOL-MYERS SQUIBB COMPANY-14580096

PATIENT
  Age: 59 Year
  Sex: Female
  Weight: 86 kg

DRUGS (10)
  1. ABILIFY [Suspect]
     Indication: DEPRESSION
     Dosage: 1DF=0.5TABLET;INCREASED TO 2MG/D INCREASED TO 1.5TABS(3MG);(0.5TABS)20MAR09;(3MG;1.5TABS)06APR09
     Dates: start: 20090217
  2. PLAVIX [Suspect]
     Indication: ARTERIAL OCCLUSIVE DISEASE
     Dosage: STARTED 5 TO 6 YEARS AGO
  3. EFFEXOR [Concomitant]
     Dosage: ON JAN09 DOSE REDUCED TO 75MG
     Dates: start: 20081001
  4. CRESTOR [Concomitant]
     Dosage: 3 TO 4 YEARS
  5. GEMFIBROZIL [Concomitant]
     Dosage: 4 YEARS
  6. CALCIUM [Concomitant]
  7. BABY ASPIRIN [Concomitant]
  8. IBUPROFEN [Concomitant]
     Dosage: DAILY
  9. CENTRUM [Concomitant]
     Dates: start: 20090101
  10. LISINOPRIL AND HYDROCHLOROTHIAZIDE [Concomitant]
     Dosage: 1 DF = 10MG/12.5MG

REACTIONS (6)
  - ARRHYTHMIA [None]
  - INSOMNIA [None]
  - JOINT STIFFNESS [None]
  - MUSCLE SPASMS [None]
  - PAIN [None]
  - TINNITUS [None]
